FAERS Safety Report 7377711-1 (Version None)
Quarter: 2011Q1

REPORT INFORMATION
  Report Type: 
  Country: None (occurrence: None)
  Receive Date: 20110328
  Receipt Date: 20110318
  Transmission Date: 20110831
  Serious: Yes (Other)
  Sender: FDA-Public Use
  Company Number: US-PERRIGO-11US002326

PATIENT
  Sex: Male
  Weight: 68.027 kg

DRUGS (3)
  1. TUSSIN PE CF LIQ 516 [Suspect]
     Indication: RHINORRHOEA
  2. TUSSIN PE CF LIQ 516 [Suspect]
     Indication: COUGH
  3. TUSSIN PE CF LIQ 516 [Suspect]
     Indication: OROPHARYNGEAL PAIN
     Dosage: MORE THAN 30 ML, ONCE
     Route: 048
     Dates: start: 20110317, end: 20110317

REACTIONS (4)
  - PYREXIA [None]
  - DIARRHOEA [None]
  - INTENTIONAL OVERDOSE [None]
  - BACTERAEMIA [None]
